FAERS Safety Report 15946649 (Version 1)
Quarter: 2019Q1

REPORT INFORMATION
  Report Type: Spontaneous
  Country: US (occurrence: US)
  Receive Date: 20190212
  Receipt Date: 20190212
  Transmission Date: 20190417
  Serious: Yes (Hospitalization)
  Sender: FDA-Public Use
  Company Number: None

PATIENT
  Age: 54 Year
  Sex: Male

DRUGS (12)
  1. SULFAMETHOXAZOLE-TRIMETHOPRIM DS [Concomitant]
     Active Substance: SULFAMETHOXAZOLE\TRIMETHOPRIM
  2. PROCHLORPERAZINE. [Concomitant]
     Active Substance: PROCHLORPERAZINE
  3. VALACYCLOVIR [Concomitant]
     Active Substance: VALACYCLOVIR HYDROCHLORIDE
  4. CYTOXAN [Concomitant]
     Active Substance: CYCLOPHOSPHAMIDE
  5. YESCARTA [Suspect]
     Active Substance: AXICABTAGENE CILOLEUCEL
     Indication: DIFFUSE LARGE B-CELL LYMPHOMA
     Dates: start: 20180815
  6. ALLOPURINOL. [Concomitant]
     Active Substance: ALLOPURINOL
  7. CYCLOBENZAPRINE. [Concomitant]
     Active Substance: CYCLOBENZAPRINE
  8. GABAPENTIN. [Concomitant]
     Active Substance: GABAPENTIN
  9. ONDANSETRON [Concomitant]
     Active Substance: ONDANSETRON
  10. OMEPRAZOLE. [Concomitant]
     Active Substance: OMEPRAZOLE
  11. FLUDARABINE [Concomitant]
     Active Substance: FLUDARABINE PHOSPHATE
  12. LEVOFLOXACIN. [Concomitant]
     Active Substance: LEVOFLOXACIN

REACTIONS (3)
  - Disease progression [None]
  - Back pain [None]
  - Pyrexia [None]

NARRATIVE: CASE EVENT DATE: 20180815
